FAERS Safety Report 17212085 (Version 1)
Quarter: 2019Q4

REPORT INFORMATION
  Report Type: Spontaneous
  Country: JP (occurrence: JP)
  Receive Date: 20191230
  Receipt Date: 20191230
  Transmission Date: 20200122
  Serious: Yes (Other)
  Sender: FDA-Public Use
  Company Number: JP-ROCHE-2508971

PATIENT
  Age: 5 Decade
  Sex: Female

DRUGS (1)
  1. AVASTIN [Suspect]
     Active Substance: BEVACIZUMAB
     Indication: CERVIX CARCINOMA
     Route: 041

REACTIONS (2)
  - Female genital tract fistula [Not Recovered/Not Resolved]
  - Cervix carcinoma [Unknown]

NARRATIVE: CASE EVENT DATE: 20191218
